APPROVED DRUG PRODUCT: KLOR-CON M15
Active Ingredient: POTASSIUM CHLORIDE
Strength: 15MEQ
Dosage Form/Route: TABLET, EXTENDED RELEASE;ORAL
Application: A074726 | Product #003 | TE Code: AB1
Applicant: UPSHER SMITH LABORATORIES LLC
Approved: Jun 6, 2003 | RLD: No | RS: No | Type: RX